FAERS Safety Report 9729844 (Version 2)
Quarter: 2013Q4

REPORT INFORMATION
  Report Type: Report from Study
  Country: JP (occurrence: JP)
  Receive Date: 20131204
  Receipt Date: 20131204
  Transmission Date: 20140711
  Serious: Yes (Other)
  Sender: FDA-Public Use
  Company Number: JP-TAKEDA-2013TJP000470

PATIENT
  Age: 61 Year
  Sex: Female
  Weight: 68 kg

DRUGS (8)
  1. PIOGLITAZONE, METFORMIN [Suspect]
     Indication: TYPE 2 DIABETES MELLITUS
     Dosage: 1 DF, QD
     Route: 048
     Dates: start: 20110811, end: 20130310
  2. HUMALOG [Concomitant]
     Indication: TYPE 2 DIABETES MELLITUS
     Dosage: 30 UT, TID
     Route: 050
     Dates: start: 20120127, end: 20130311
  3. JANUVIA [Concomitant]
     Indication: TYPE 2 DIABETES MELLITUS
     Dosage: 25 MG, 1 DAYS
     Route: 048
     Dates: start: 20120224
  4. ORAL ANTIDIABETICS [Concomitant]
     Indication: TYPE 2 DIABETES MELLITUS
     Dosage: 3 DF, 1 DAYS
     Route: 048
     Dates: start: 20110811
  5. TOWAMIN [Concomitant]
     Indication: SINUS TACHYCARDIA
     Dosage: 50 MG, 1 DAYS
     Route: 048
     Dates: start: 20120224, end: 20130311
  6. AITANT [Concomitant]
     Dosage: 200 MG, 1 DAYS
     Route: 048
     Dates: start: 20111121, end: 20130311
  7. LIPITOR [Concomitant]
     Dosage: 10 MG, 1 DAYS
     Route: 048
     Dates: start: 20101222, end: 20130311
  8. CEPHADOL [Concomitant]
     Dosage: 75 MG, 1 DAYS
     Route: 048
     Dates: end: 20130311

REACTIONS (1)
  - Hypertensive encephalopathy [Recovered/Resolved]
